FAERS Safety Report 17365455 (Version 1)
Quarter: 2020Q1

REPORT INFORMATION
  Report Type: Spontaneous
  Country: JP (occurrence: JP)
  Receive Date: 20200204
  Receipt Date: 20200204
  Transmission Date: 20200409
  Serious: Yes (Other)
  Sender: FDA-Public Use
  Company Number: JP-009507513-2001JPN003229J

PATIENT
  Age: 47 Year
  Sex: Male
  Weight: 87 kg

DRUGS (3)
  1. GLICLAZIDE [Concomitant]
     Active Substance: GLICLAZIDE
     Indication: DIABETES MELLITUS INADEQUATE CONTROL
     Dosage: 20 MILLIGRAM, QD
     Route: 065
     Dates: start: 2005
  2. JANUVIA [Suspect]
     Active Substance: SITAGLIPTIN PHOSPHATE
     Indication: TYPE 2 DIABETES MELLITUS
     Dosage: UNK
     Route: 048
  3. JANUVIA [Suspect]
     Active Substance: SITAGLIPTIN PHOSPHATE
     Dosage: 50 MILLIGRAM, QD
     Route: 048
     Dates: start: 2012

REACTIONS (2)
  - Drug ineffective [Unknown]
  - Cellulitis [Unknown]

NARRATIVE: CASE EVENT DATE: 2012
